FAERS Safety Report 7681630-0 (Version None)
Quarter: 2011Q3

REPORT INFORMATION
  Report Type: 
  Country: None (occurrence: None)
  Receive Date: 20110812
  Receipt Date: 20110810
  Transmission Date: 20111222
  Serious: Yes (Death, Hospitalization, Other)
  Sender: FDA-Public Use
  Company Number: PHHY2009JP10288

PATIENT
  Sex: Female
  Weight: 41 kg

DRUGS (46)
  1. EXJADE [Suspect]
     Indication: IRON OVERLOAD
     Dosage: 125 MG, QD
     Route: 048
     Dates: start: 20081127, end: 20081204
  2. ANTEBATE [Concomitant]
  3. INTRALIPID 10% [Concomitant]
  4. XYLOCAINE [Concomitant]
  5. OMEPRAZOLE [Concomitant]
     Indication: PROPHYLAXIS
     Dosage: 20 MG, UNK
     Route: 048
     Dates: start: 20081128, end: 20081128
  6. KINDAVATE [Concomitant]
  7. TERRA-CORTRIL [Concomitant]
  8. HEPARIN [Concomitant]
  9. ALLOPURINOL [Concomitant]
     Dosage: 200 G, UNK
     Route: 048
  10. FLUCONAZOLE [Concomitant]
     Dosage: 200 MG, UNK
     Route: 048
     Dates: start: 20090526
  11. PREDNISOLONE [Concomitant]
     Indication: APLASTIC ANAEMIA
     Dosage: 30 MG, UNK
     Route: 048
     Dates: start: 20081204, end: 20081209
  12. FUNGIZONE [Concomitant]
     Route: 048
  13. GRAN [Concomitant]
  14. NOVOLIN R [Concomitant]
  15. MAGNESIUM CHLORIDE [Concomitant]
  16. CHLORHEXIDINE GLUCONATE [Concomitant]
  17. NEGMIN [Concomitant]
  18. ALLEGRA [Concomitant]
     Dosage: 120 MG, UNK
     Route: 048
  19. FAMOTIDINE [Concomitant]
     Dosage: 20 MG, UNK
     Route: 048
     Dates: start: 20081129
  20. ALENDRONATE SODIUM [Concomitant]
     Dosage: 35 MG, UNK
     Route: 048
  21. INTRALIPID 10% [Concomitant]
  22. AMINO ACIDS/CARBOHYDRATES/MINERALS/VITAMINS, [Concomitant]
  23. MEROPENEM [Concomitant]
  24. PREDNISOLONE [Concomitant]
     Dosage: 15 MG, UNK
     Route: 048
  25. BLOOD CELLS, RED [Concomitant]
     Dosage: UNK
     Dates: start: 20081119, end: 20081205
  26. EXJADE [Suspect]
     Dosage: 250 MG, QD
     Route: 048
     Dates: start: 20081205, end: 20081216
  27. PROGRAF [Suspect]
     Dosage: 4 MG, DAILY
     Route: 048
     Dates: start: 20081204, end: 20081210
  28. MAGNESIUM SULFATE [Concomitant]
  29. PREDNISOLONE [Concomitant]
     Dosage: 10 MG, UNK
     Route: 048
  30. NEUPOGEN [Concomitant]
     Indication: APLASTIC ANAEMIA
  31. PROGRAF [Suspect]
     Dosage: 2 MG, DAILY
     Route: 048
     Dates: start: 20090520
  32. ZOVIRAX [Concomitant]
     Dosage: 200 MG, UNK
     Route: 048
     Dates: start: 20081125
  33. ISOTONIC SOLUTIONS [Concomitant]
  34. ALLOPURINOL [Concomitant]
     Dosage: 100 G, UNK
     Route: 048
  35. ZYRTEC [Concomitant]
     Dosage: 100 G, UNK
     Route: 048
  36. URSO 250 [Concomitant]
     Dosage: 600 MG, UNK
     Route: 048
     Dates: start: 20081126
  37. LEVOFLOXACIN [Concomitant]
     Dosage: 400 MG, UNK
     Route: 048
     Dates: start: 20081127, end: 20081211
  38. HIRUDOID [Concomitant]
  39. SOLDEM 1 [Concomitant]
  40. MULTIVITAMIN ADDITIVE [Concomitant]
  41. DORIPENEM MONOHYDRATE [Concomitant]
  42. IMMUNE GLOBULIN INTRAVENOUS (HUMAN) [Concomitant]
  43. DESFERAL [Concomitant]
     Dosage: 500 MG, QD
     Dates: start: 20070827, end: 20080827
  44. CEFAZOLIN SODIUM [Concomitant]
     Route: 048
  45. MYSER [Concomitant]
  46. HACHIAZULE [Concomitant]

REACTIONS (12)
  - RENAL IMPAIRMENT [None]
  - BRONCHOPULMONARY ASPERGILLOSIS [None]
  - BRONCHITIS [None]
  - STOMATITIS [None]
  - DISEASE PROGRESSION [None]
  - FEBRILE NEUTROPENIA [None]
  - HEPATIC FUNCTION ABNORMAL [None]
  - NAUSEA [None]
  - BLOOD CREATININE INCREASED [None]
  - APLASTIC ANAEMIA [None]
  - WHITE BLOOD CELL COUNT DECREASED [None]
  - HYPERAMYLASAEMIA [None]
